FAERS Safety Report 4541363-6 (Version None)
Quarter: 2004Q4

REPORT INFORMATION
  Report Type: 
  Country: None (occurrence: None)
  Receive Date: 20041227
  Receipt Date: 20041215
  Transmission Date: 20050328
  Serious: Yes (Death)
  Sender: FDA-Public Use
  Company Number: CERZ-10740

PATIENT
  Age: 60 Year
  Sex: Female
  Weight: 32 kg

DRUGS (4)
  1. CEREZYME [Suspect]
     Indication: GAUCHER'S DISEASE
     Dosage: 900 UNITS Q2WKS IV
     Route: 042
     Dates: start: 19980101, end: 20041124
  2. SINEMET [Concomitant]
  3. REQUIP [Concomitant]
  4. COMTAN [Concomitant]

REACTIONS (7)
  - HIP ARTHROPLASTY [None]
  - HIP FRACTURE [None]
  - LOBAR PNEUMONIA [None]
  - MALNUTRITION [None]
  - MUSCLE ATROPHY [None]
  - PARKINSON'S DISEASE [None]
  - RESPIRATORY FAILURE [None]
